FAERS Safety Report 5266862-3 (Version None)
Quarter: 2007Q1

REPORT INFORMATION
  Report Type: 
  Country: None (occurrence: None)
  Receive Date: 20070316
  Receipt Date: 20070308
  Transmission Date: 20070707
  Serious: Yes (Other)
  Sender: FDA-Public Use
  Company Number: PHBS2007IE04267

PATIENT
  Sex: Female

DRUGS (2)
  1. ZOMETA [Suspect]
     Indication: BREAST CANCER METASTATIC
     Route: 042
  2. CHEMOTHERAPEUTICS,OTHER [Concomitant]
     Route: 065

REACTIONS (3)
  - OSTEONECROSIS [None]
  - TOOTH EXTRACTION [None]
  - TOOTHACHE [None]
